FAERS Safety Report 13400274 (Version 1)
Quarter: 2017Q2

REPORT INFORMATION
  Report Type: Spontaneous
  Country: US (occurrence: US)
  Receive Date: 20170404
  Receipt Date: 20170404
  Transmission Date: 20170830
  Serious: Yes (Life-Threatening, Hospitalization, Disabling)
  Sender: FDA-Public Use
  Company Number: None

PATIENT
  Age: 52 Year
  Sex: Female
  Weight: 68.04 kg

DRUGS (1)
  1. MIRENA [Suspect]
     Active Substance: LEVONORGESTREL

REACTIONS (7)
  - Procedural pain [None]
  - Post procedural haematoma [None]
  - Staphylococcal infection [None]
  - Medical device site pain [None]
  - Oestrogen receptor positive breast cancer [None]
  - Post procedural infection [None]
  - Hysterectomy [None]

NARRATIVE: CASE EVENT DATE: 20160404
